FAERS Safety Report 4309791-1 (Version None)
Quarter: 2004Q1

REPORT INFORMATION
  Report Type: 
  Country: None (occurrence: None)
  Receive Date: 20040301
  Receipt Date: 20040220
  Transmission Date: 20041129
  Serious: Yes (Other)
  Sender: FDA-Public Use
  Company Number: 2003148173JP

PATIENT
  Age: 43 Year
  Sex: Female
  Weight: 74 kg

DRUGS (12)
  1. GENOTROPIN [Suspect]
     Indication: HYPOPITUITARISM
     Dosage: SEE IMAGE
     Route: 058
     Dates: start: 20020312, end: 20020408
  2. GENOTROPIN [Suspect]
     Indication: HYPOPITUITARISM
     Dosage: SEE IMAGE
     Route: 058
     Dates: start: 20020409, end: 20020506
  3. GENOTROPIN [Suspect]
     Indication: HYPOPITUITARISM
     Dosage: SEE IMAGE
     Route: 058
     Dates: start: 20020507, end: 20020801
  4. GENOTROPIN [Suspect]
     Indication: HYPOPITUITARISM
     Dosage: SEE IMAGE
     Route: 058
     Dates: start: 20020802, end: 20020806
  5. GENOTROPIN [Suspect]
     Indication: HYPOPITUITARISM
     Dosage: SEE IMAGE
     Route: 058
     Dates: start: 20020827, end: 20030219
  6. DESMOPRESSIN ACETATE (DESMOPRESSIN ACETATE) [Concomitant]
  7. PRAVASTATIN SODIUM [Concomitant]
  8. PHENYTOIN [Concomitant]
  9. LEVOTHYROXINE SODIUM [Concomitant]
  10. CORTRIL [Concomitant]
  11. MOSAPRIDE CITRATE (MOXAVERINE) [Concomitant]
  12. LANSOPRAZOLE [Concomitant]

REACTIONS (2)
  - CRANIOPHARYNGIOMA [None]
  - NEOPLASM RECURRENCE [None]
